FAERS Safety Report 7246533-4 (Version None)
Quarter: 2011Q1

REPORT INFORMATION
  Report Type: 
  Country: None (occurrence: None)
  Receive Date: 20110127
  Receipt Date: 20110117
  Transmission Date: 20110831
  Serious: Yes (Hospitalization)
  Sender: FDA-Public Use
  Company Number: FR-BIOGENIDEC-2010BI030011

PATIENT
  Age: 57 Year
  Sex: Female
  Weight: 60 kg

DRUGS (8)
  1. TYSABRI [Suspect]
     Route: 042
     Dates: start: 20091020
  2. ANTIINFECTIVES [Concomitant]
  3. OPTURME [HERBAL] [Concomitant]
  4. TYSABRI [Suspect]
     Indication: MULTIPLE SCLEROSIS
     Route: 042
     Dates: start: 20080123, end: 20090401
  5. OROCAL [Concomitant]
     Indication: OSTEOPOROSIS
     Route: 048
     Dates: start: 20060101
  6. NEURONTIN [Concomitant]
     Indication: PARAESTHESIA
     Route: 048
     Dates: start: 20060614
  7. ANTIEPILEPTIC [Concomitant]
  8. BICIRKAN [HERBRAL] [Concomitant]

REACTIONS (1)
  - CHRONIC SINUSITIS [None]
